FAERS Safety Report 7946802-6 (Version None)
Quarter: 2011Q4

REPORT INFORMATION
  Report Type: 
  Country: None (occurrence: None)
  Receive Date: 20111129
  Receipt Date: 20111122
  Transmission Date: 20120403
  Serious: Yes (Hospitalization)
  Sender: FDA-Public Use
  Company Number: ES-ABBOTT-11P-144-0876758-00

PATIENT
  Age: 57 Year
  Sex: Male
  Weight: 74 kg

DRUGS (4)
  1. STATINS [Concomitant]
     Indication: HYPERCHOLESTEROLAEMIA
     Route: 048
  2. IMURAN [Concomitant]
     Indication: CROHN'S DISEASE
     Route: 048
     Dates: start: 20040101
  3. HUMIRA [Suspect]
     Route: 058
     Dates: start: 20091001
  4. HUMIRA [Suspect]
     Indication: CROHN'S DISEASE
     Route: 058
     Dates: start: 20060101, end: 20090201

REACTIONS (3)
  - PULMONARY THROMBOSIS [None]
  - INJECTION SITE PAIN [None]
  - THROMBOSIS [None]
